FAERS Safety Report 7733198-8 (Version None)
Quarter: 2011Q3

REPORT INFORMATION
  Report Type: 
  Country: None (occurrence: None)
  Receive Date: 20110907
  Receipt Date: 20110902
  Transmission Date: 20111222
  Serious: Yes (Death, Hospitalization)
  Sender: FDA-Public Use
  Company Number: US-ASTELLAS-2011US005563

PATIENT
  Sex: Male
  Weight: 83 kg

DRUGS (1)
  1. PROGRAF [Suspect]
     Indication: HEART TRANSPLANT
     Dosage: 7 MG, UID/QD
     Route: 048
     Dates: start: 20060209, end: 20110324

REACTIONS (3)
  - HEART TRANSPLANT REJECTION [None]
  - DRUG INEFFECTIVE [None]
  - DEATH [None]
